FAERS Safety Report 20722324 (Version 1)
Quarter: 2022Q2

REPORT INFORMATION
  Report Type: Report from Study
  Country: TW (occurrence: None)
  Receive Date: 20220418
  Receipt Date: 20220418
  Transmission Date: 20220721
  Serious: Yes (Death, Hospitalization)
  Sender: FDA-Public Use
  Company Number: TW-ROCHE-3036930

PATIENT
  Age: 61 Year
  Sex: Male
  Weight: 64.6 kg

DRUGS (21)
  1. TIRAGOLUMAB [Suspect]
     Active Substance: TIRAGOLUMAB
     Indication: Non-small cell lung cancer
     Dosage: START DATE OF MOST RECENT DOSE OF STUDY DRUG PRIOR TO AE;09/FEB/2022
     Route: 042
     Dates: start: 20210914
  2. ATEZOLIZUMAB [Suspect]
     Active Substance: ATEZOLIZUMAB
     Indication: Non-small cell lung cancer
     Dosage: START DATE OF MOST RECENT DOSE OF STUDY DRUG PRIOR TO SAE: 09/FEB/2022
     Route: 042
     Dates: start: 20210914
  3. ATEZOLIZUMAB [Suspect]
     Active Substance: ATEZOLIZUMAB
     Indication: Non-small cell lung cancer
     Dosage: START DATE OF MOST RECENT DOSE OF STUDY DRUG PRIOR TO SAE:09/FEB/2022
     Route: 041
     Dates: start: 20210914
  4. CARBOPLATIN [Suspect]
     Active Substance: CARBOPLATIN
     Indication: Non-small cell lung cancer
     Dosage: DOSE LAST STUDY DRUG ADMIN PRIOR AE;393MG?START DATE OF MOST RECENT DOSE OF STUDY DRUG PRIOR TO SAE:
     Route: 042
     Dates: start: 20210914
  5. PEMETREXED [Suspect]
     Active Substance: PEMETREXED
     Indication: Non-small cell lung cancer
     Dosage: DOSE LAST STUDY DRUG ADMIN PRIOR SAE IS 860 MG ON 09-FEB-2022
     Route: 042
     Dates: start: 20210914
  6. RINDERON V [Concomitant]
     Active Substance: BETAMETHASONE VALERATE
     Indication: Rash
     Route: 061
     Dates: start: 20211223, end: 20220129
  7. NINCORT [Concomitant]
     Indication: Mucosal inflammation
     Route: 001
     Dates: start: 20220119
  8. MEGEST (TAIWAN) [Concomitant]
     Dosage: MEGEST ORAL SUSP 40 MG/ML
     Route: 048
     Dates: start: 20220119, end: 20220126
  9. MEGEST (TAIWAN) [Concomitant]
     Dosage: MEGEST ORAL SUSP 40 MG/ML
     Route: 048
     Dates: start: 20220209
  10. DEXAMETHASONE [Concomitant]
     Active Substance: DEXAMETHASONE
     Route: 042
     Dates: start: 20220209, end: 20220209
  11. NETUPITANT\PALONOSETRON [Concomitant]
     Active Substance: NETUPITANT\PALONOSETRON
     Route: 048
     Dates: start: 20220209, end: 20220209
  12. CHLORPROMAZINE [Concomitant]
     Active Substance: CHLORPROMAZINE
     Route: 048
     Dates: start: 20220209, end: 20220209
  13. PRIMPERAN [Concomitant]
     Active Substance: METOCLOPRAMIDE HYDROCHLORIDE
     Indication: Decreased appetite
     Route: 048
     Dates: start: 20220126
  14. MEGEJOHN [Concomitant]
     Indication: Decreased appetite
     Route: 048
     Dates: start: 20220126, end: 20220209
  15. MAGNESIUM OXIDE [Concomitant]
     Active Substance: MAGNESIUM OXIDE
     Indication: Constipation
     Route: 048
     Dates: start: 20220209
  16. ATIVAN [Concomitant]
     Active Substance: LORAZEPAM
     Indication: Insomnia
     Route: 048
     Dates: start: 20220209, end: 20220216
  17. THROUGH [Concomitant]
     Indication: Constipation
     Route: 048
     Dates: start: 20220216
  18. VITAMIN B12 [Concomitant]
     Active Substance: CYANOCOBALAMIN
     Route: 030
     Dates: start: 20220216, end: 20220216
  19. LORAZEPAM [Concomitant]
     Active Substance: LORAZEPAM
     Indication: Insomnia
     Route: 048
     Dates: start: 20220224
  20. FAMOTIDINE [Concomitant]
     Active Substance: FAMOTIDINE
     Route: 048
     Dates: start: 20220225
  21. CEFTRIAXONE [Concomitant]
     Active Substance: CEFTRIAXONE
     Route: 042
     Dates: start: 20220224

REACTIONS (1)
  - Pneumonitis [Fatal]

NARRATIVE: CASE EVENT DATE: 20220224
